FAERS Safety Report 11928157 (Version 1)
Quarter: 2016Q1

REPORT INFORMATION
  Report Type: Spontaneous
  Country: US (occurrence: US)
  Receive Date: 20160119
  Receipt Date: 20160119
  Transmission Date: 20160526
  Serious: Yes (Other)
  Sender: FDA-Public Use
  Company Number: US-LPDUSPRD-20160016

PATIENT
  Age: 29 Year
  Sex: Male

DRUGS (1)
  1. ADENOSINE INJECTION, USP (6404-10) 3 MG/ML [Suspect]
     Active Substance: ADENOSINE
     Dosage: 6 MG
     Route: 040

REACTIONS (2)
  - Bronchospasm [Unknown]
  - Respiratory failure [Unknown]
